FAERS Safety Report 12698701 (Version 1)
Quarter: 2016Q3

REPORT INFORMATION
  Report Type: Spontaneous
  Country: US (occurrence: US)
  Receive Date: 20160830
  Receipt Date: 20160830
  Transmission Date: 20161109
  Serious: No
  Sender: FDA-Public Use
  Company Number: US-ASTRAZENECA-2016SE86650

PATIENT
  Sex: Male
  Weight: 97.5 kg

DRUGS (4)
  1. BYDUREON [Suspect]
     Active Substance: EXENATIDE
     Indication: ADJUVANT THERAPY
     Route: 058
     Dates: start: 20160718, end: 20160801
  2. METFORMIN [Concomitant]
     Active Substance: METFORMIN HYDROCHLORIDE
     Route: 048
  3. BYDUREON [Suspect]
     Active Substance: EXENATIDE
     Indication: DIABETES MELLITUS
     Route: 058
     Dates: start: 20160718, end: 20160801
  4. BYDUREON [Suspect]
     Active Substance: EXENATIDE
     Indication: BLOOD CHOLESTEROL ABNORMAL
     Route: 058
     Dates: start: 20160718, end: 20160801

REACTIONS (6)
  - Injection site nodule [Unknown]
  - Blood glucose increased [Recovered/Resolved]
  - Product use issue [Unknown]
  - Injection site rash [Not Recovered/Not Resolved]
  - Injection site injury [Not Recovered/Not Resolved]
  - Off label use [Unknown]
